FAERS Safety Report 25787092 (Version 1)
Quarter: 2025Q3

REPORT INFORMATION
  Report Type: Spontaneous
  Country: US (occurrence: US)
  Receive Date: 20250910
  Receipt Date: 20250910
  Transmission Date: 20251020
  Serious: No
  Sender: GLAXOSMITHKLINE
  Company Number: US-GSK-US2025AMR105483

PATIENT
  Sex: Female

DRUGS (3)
  1. NUCALA [Suspect]
     Active Substance: MEPOLIZUMAB
     Indication: Chronic obstructive pulmonary disease
     Dosage: 100 MG, Q4W
     Dates: start: 202506
  2. VIOS [Concomitant]
     Indication: Product used for unknown indication
  3. OHTUVAYRE [Concomitant]
     Active Substance: ENSIFENTRINE
     Indication: Product used for unknown indication

REACTIONS (3)
  - Anxiety [Unknown]
  - Urine abnormality [Not Recovered/Not Resolved]
  - Urinary tract infection [Not Recovered/Not Resolved]
